FAERS Safety Report 18465070 (Version 1)
Quarter: 2020Q4

REPORT INFORMATION
  Report Type: Spontaneous
  Country: US (occurrence: US)
  Receive Date: 20201104
  Receipt Date: 20201104
  Transmission Date: 20210114
  Serious: No
  Sender: FDA-Public Use
  Company Number: US-ALKERMES INC.-ALK-2020-004827

PATIENT
  Age: 37 Year
  Sex: Male
  Weight: 86.17 kg

DRUGS (3)
  1. VIVITROL [Suspect]
     Active Substance: NALTREXONE
     Dosage: 380 MILLIGRAM, QMO
     Route: 030
     Dates: start: 2012
  2. IBUPROFEN. [Concomitant]
     Active Substance: IBUPROFEN
     Indication: PRODUCT USED FOR UNKNOWN INDICATION
     Dosage: UNK
  3. VIVITROL [Suspect]
     Active Substance: NALTREXONE
     Indication: DRUG USE DISORDER
     Dosage: 380 MILLIGRAM, QMO
     Route: 030
     Dates: start: 20201026

REACTIONS (3)
  - Insomnia [Not Recovered/Not Resolved]
  - Restlessness [Not Recovered/Not Resolved]
  - Muscle discomfort [Not Recovered/Not Resolved]

NARRATIVE: CASE EVENT DATE: 20201026
